FAERS Safety Report 23116117 (Version 1)
Quarter: 2023Q4

REPORT INFORMATION
  Report Type: Spontaneous
  Country: US (occurrence: US)
  Receive Date: 20231027
  Receipt Date: 20231027
  Transmission Date: 20240110
  Serious: No
  Sender: FDA-Public Use
  Company Number: US-Ipsen Biopharmaceuticals, Inc.-2023-24468

PATIENT
  Sex: Male
  Weight: 72.57 kg

DRUGS (1)
  1. SOMATULINE DEPOT [Suspect]
     Active Substance: LANREOTIDE ACETATE
     Indication: Neuroendocrine tumour
     Route: 065

REACTIONS (7)
  - Glycosylated haemoglobin increased [Not Recovered/Not Resolved]
  - Blood glucose increased [Not Recovered/Not Resolved]
  - Weight decreased [Not Recovered/Not Resolved]
  - Non-alcoholic fatty liver [Not Recovered/Not Resolved]
  - Off label use [Unknown]
  - Chills [Not Recovered/Not Resolved]
  - Flatulence [Not Recovered/Not Resolved]
